FAERS Safety Report 5706792-3 (Version None)
Quarter: 2008Q2

REPORT INFORMATION
  Report Type: 
  Country: None (occurrence: None)
  Receive Date: 20080416
  Receipt Date: 20080416
  Transmission Date: 20081010
  Serious: Yes (Death)
  Sender: FDA-Public Use
  Company Number: None

PATIENT
  Sex: Male
  Weight: 185.9748 kg

DRUGS (2)
  1. HEPARIN [Suspect]
     Indication: THROMBOSIS PROPHYLAXIS
     Dosage: 5000 UNITS Q12H SQ; Q12 DOSING; 5000 UNITS/ML Q8H, SQ; Q8H DOSING
     Route: 058
     Dates: start: 20080208, end: 20080210
  2. HEPARIN [Suspect]
     Indication: THROMBOSIS PROPHYLAXIS
     Dosage: 5000 UNITS Q12H SQ; Q12 DOSING; 5000 UNITS/ML Q8H, SQ; Q8H DOSING
     Route: 058
     Dates: start: 20080210, end: 20080226

REACTIONS (2)
  - CELLULITIS [None]
  - PULMONARY EMBOLISM [None]
